FAERS Safety Report 8343723-4 (Version None)
Quarter: 2012Q2

REPORT INFORMATION
  Report Type: 
  Country: None (occurrence: None)
  Receive Date: 20120508
  Receipt Date: 20120508
  Transmission Date: 20120825
  Serious: No
  Sender: FDA-Public Use
  Company Number: None

PATIENT
  Age: 33 Year
  Sex: Female
  Weight: 58.967 kg

DRUGS (1)
  1. WELLBUTRIN XL [Suspect]
     Indication: PANIC DISORDER
     Dosage: 150MG
     Route: 050
     Dates: start: 20120404, end: 20120408

REACTIONS (9)
  - CONFUSIONAL STATE [None]
  - ANGER [None]
  - PRODUCT SUBSTITUTION ISSUE [None]
  - ANXIETY [None]
  - CRYING [None]
  - SUICIDAL IDEATION [None]
  - FEELING ABNORMAL [None]
  - DRUG EFFECT DECREASED [None]
  - PRODUCT QUALITY ISSUE [None]
